FAERS Safety Report 7959336-X (Version None)
Quarter: 2011Q4

REPORT INFORMATION
  Report Type: 
  Country: None (occurrence: None)
  Receive Date: 20111206
  Receipt Date: 20111201
  Transmission Date: 20120403
  Serious: Yes (Other)
  Sender: FDA-Public Use
  Company Number: DK-PFIZER INC-2011222307

PATIENT
  Age: 77 Year
  Sex: Female
  Weight: 71 kg

DRUGS (11)
  1. ESTRING [Suspect]
     Indication: ATROPHIC VULVOVAGINITIS
     Dosage: 7.5 UG, DAILY
     Route: 067
     Dates: start: 20110607, end: 20110913
  2. LANSOPRAZOLE [Concomitant]
     Indication: GASTRIC PH DECREASED
  3. MAREVAN ^NYCOMED^ [Concomitant]
     Indication: ATRIAL FIBRILLATION
  4. CARDICOR [Concomitant]
  5. AMLODIPINE [Concomitant]
     Indication: HYPERTENSION
  6. FUROSEMIDE [Concomitant]
     Indication: HYPERTENSION
  7. FELODIPINE [Concomitant]
     Indication: HYPERTENSION
  8. SIMVASTATIN [Concomitant]
     Indication: HYPERCHOLESTEROLAEMIA
  9. LYRICA [Concomitant]
     Indication: PAIN
  10. BISOPROLOL FUMARATE [Concomitant]
     Indication: ATRIAL FIBRILLATION
  11. SEROQUEL [Concomitant]
     Indication: ANXIETY

REACTIONS (2)
  - ATRIAL FIBRILLATION [None]
  - CONDITION AGGRAVATED [None]
